FAERS Safety Report 23081187 (Version 2)
Quarter: 2024Q1

REPORT INFORMATION
  Report Type: Report from Study
  Country: CA (occurrence: CA)
  Receive Date: 20231018
  Receipt Date: 20240305
  Transmission Date: 20240410
  Serious: Yes (Hospitalization, Other)
  Sender: FDA-Public Use
  Company Number: CA-TAKEDA-2023TUS100159

PATIENT
  Age: 49 Year
  Sex: Female

DRUGS (5)
  1. HUMAN IMMUNOGLOBULIN G [Suspect]
     Active Substance: HUMAN IMMUNOGLOBULIN G
     Indication: Polymyositis
     Dosage: 26 GRAM, 1/WEEK
     Route: 058
     Dates: start: 20181211
  2. HUMAN IMMUNOGLOBULIN G [Suspect]
     Active Substance: HUMAN IMMUNOGLOBULIN G
     Dosage: 10 GRAM
     Route: 050
  3. HUMAN IMMUNOGLOBULIN G [Suspect]
     Active Substance: HUMAN IMMUNOGLOBULIN G
     Dosage: 4 GRAM
     Route: 050
  4. HUMAN IMMUNOGLOBULIN G [Suspect]
     Active Substance: HUMAN IMMUNOGLOBULIN G
     Dosage: 2 GRAM
     Route: 050
  5. HUMAN IMMUNOGLOBULIN G [Suspect]
     Active Substance: HUMAN IMMUNOGLOBULIN G
     Dosage: UNK UNK, 1/WEEK
     Route: 058

REACTIONS (15)
  - Benign neoplasm of spinal cord [Unknown]
  - Thrombosis [Unknown]
  - Infusion related reaction [Unknown]
  - Scar [Unknown]
  - Nerve injury [Unknown]
  - Procedural pain [Unknown]
  - Neuralgia [Unknown]
  - Skin induration [Unknown]
  - Injection site mass [Unknown]
  - Pain [Unknown]
  - Infusion site bruising [Unknown]
  - Lethargy [Unknown]
  - Malaise [Unknown]
  - Infusion site pain [Unknown]
  - Intentional product use issue [Unknown]

NARRATIVE: CASE EVENT DATE: 20181211
